FAERS Safety Report 5667728-7 (Version None)
Quarter: 2008Q1

REPORT INFORMATION
  Report Type: 
  Country: None (occurrence: None)
  Receive Date: 20080315
  Receipt Date: 20080202
  Transmission Date: 20080703
  Serious: No
  Sender: FDA-Public Use
  Company Number: US-ABBOTT-08P-163-0436903-00

PATIENT
  Sex: Female
  Weight: 118 kg

DRUGS (10)
  1. HUMIRA [Suspect]
     Indication: RHEUMATOID ARTHRITIS
     Route: 058
     Dates: start: 20070401, end: 20080111
  2. HUMIRA [Suspect]
     Route: 058
     Dates: start: 20080111, end: 20080125
  3. HUMIRA [Suspect]
     Route: 058
     Dates: start: 20080125
  4. METHOTREXATE [Concomitant]
     Indication: RHEUMATOID ARTHRITIS
     Route: 048
  5. PROPAFENONE HCL [Concomitant]
     Indication: ATRIAL FIBRILLATION
     Route: 048
  6. ATENOLOL [Concomitant]
     Indication: HYPERTENSION
     Route: 048
  7. WARFARIN SODIUM [Concomitant]
     Indication: ATRIAL FIBRILLATION
     Route: 048
  8. SIMVASTATIN [Concomitant]
     Indication: BLOOD CHOLESTEROL INCREASED
     Route: 048
  9. WATER PILL [Concomitant]
     Indication: DRUG USE FOR UNKNOWN INDICATION
     Route: 048
  10. TOLTERODINE TARTRATE [Concomitant]
     Indication: POLLAKIURIA
     Route: 048

REACTIONS (5)
  - FATIGUE [None]
  - GAIT DISTURBANCE [None]
  - PAIN [None]
  - PARAESTHESIA [None]
  - VISION BLURRED [None]
